FAERS Safety Report 10366530 (Version 2)
Quarter: 2014Q3

REPORT INFORMATION
  Report Type: Spontaneous
  Country: FR (occurrence: FR)
  Receive Date: 20140806
  Receipt Date: 20140812
  Transmission Date: 20150326
  Serious: Yes (Death, Life-Threatening, Other)
  Sender: FDA-Public Use
  Company Number: FR-PFIZER INC-2014214390

PATIENT
  Age: 82 Year
  Sex: Male

DRUGS (11)
  1. FUROSEMIDE. [Concomitant]
     Active Substance: FUROSEMIDE
     Dosage: 40 MG, 1X/DAY
  2. NOVORAPID [Concomitant]
     Active Substance: INSULIN ASPART
  3. PREVISCAN [Concomitant]
     Active Substance: FLUINDIONE
     Dosage: 20 MG, 1X/DAY
  4. KARDEGIC [Concomitant]
     Active Substance: ASPIRIN LYSINE
     Dosage: 75 MG, 1X/DAY
  5. CLINDAMYCIN [Suspect]
     Active Substance: CLINDAMYCIN\CLINDAMYCIN PHOSPHATE
     Indication: STAPHYLOCOCCAL SEPSIS
     Dosage: 600 MG, 3X/DAY
     Route: 048
     Dates: start: 20140509, end: 20140530
  6. LOXAPAC [Concomitant]
     Active Substance: LOXAPINE SUCCINATE
     Dosage: 5 GTT, DAILY
  7. EUPRESSYL [Concomitant]
     Active Substance: URAPIDIL
     Dosage: 30 MG, 2X/DAY
  8. ATORVASTATIN CALCIUM. [Suspect]
     Active Substance: ATORVASTATIN CALCIUM
     Dosage: 80 MG, 1X/DAY
     Route: 048
     Dates: end: 20140530
  9. LANTUS [Concomitant]
     Active Substance: INSULIN GLARGINE
  10. FUCIDINE [Interacting]
     Active Substance: FUSIDIC ACID
     Indication: STAPHYLOCOCCAL SEPSIS
     Dosage: 250 MG, 3X/DAY
     Route: 048
     Dates: start: 20140509, end: 20140530
  11. CALCIPARINE [Concomitant]
     Active Substance: HEPARIN CALCIUM
     Dosage: 0.2 ML, 2X/DAY

REACTIONS (6)
  - Hepatic enzyme increased [Fatal]
  - Drug interaction [Fatal]
  - Hyperkalaemia [Fatal]
  - Hyponatraemia [Fatal]
  - Renal failure acute [Fatal]
  - Rhabdomyolysis [Fatal]

NARRATIVE: CASE EVENT DATE: 20140529
